FAERS Safety Report 5411200-6 (Version None)
Quarter: 2007Q3

REPORT INFORMATION
  Report Type: 
  Country: None (occurrence: None)
  Receive Date: 20070810
  Receipt Date: 20070806
  Transmission Date: 20080115
  Serious: Yes (Other)
  Sender: FDA-Public Use
  Company Number: A0669276A

PATIENT
  Age: 53 Year
  Sex: Male

DRUGS (2)
  1. LAMICTAL [Suspect]
     Route: 065
     Dates: start: 20070729, end: 20070731
  2. KEPPRA [Concomitant]

REACTIONS (1)
  - HYPOMANIA [None]
